FAERS Safety Report 7391774-9 (Version None)
Quarter: 2011Q2

REPORT INFORMATION
  Report Type: 
  Country: None (occurrence: None)
  Receive Date: 20110404
  Receipt Date: 20110329
  Transmission Date: 20111010
  Serious: Yes (Hospitalization)
  Sender: FDA-Public Use
  Company Number: NL-ROCHE-761739

PATIENT
  Sex: Female

DRUGS (8)
  1. BEVACIZUMAB [Suspect]
     Dosage: DATE OF LAST CYCLE (6): 26 MAY 2010
     Route: 042
     Dates: start: 20100413
  2. NEXIUM [Concomitant]
  3. HYDROCHLOROTHIAZIDE [Concomitant]
  4. DURAGESIC-50 [Concomitant]
  5. OXALIPLATIN [Suspect]
     Route: 042
     Dates: start: 20100413
  6. CAPECITABINE [Suspect]
     Dosage: DATE OF LASY CYCLE (6): 28 JULY 2010
     Route: 048
     Dates: start: 20100413
  7. ASPIRIN [Concomitant]
     Dosage: DRUG: ASA 80
  8. DILTIAZEM HCL [Concomitant]

REACTIONS (1)
  - CHOLANGITIS [None]
